FAERS Safety Report 6457738-4 (Version None)
Quarter: 2009Q4

REPORT INFORMATION
  Report Type: 
  Country: None (occurrence: None)
  Receive Date: 20091125
  Receipt Date: 20091117
  Transmission Date: 20100525
  Serious: Yes (Hospitalization)
  Sender: FDA-Public Use
  Company Number: US-ABBOTT-09P-163-0609410-00

PATIENT
  Sex: Female
  Weight: 77.1 kg

DRUGS (15)
  1. DEPAKOTE [Suspect]
     Indication: BIPOLAR DISORDER
     Dates: start: 20071115, end: 20080727
  2. CELECOXIB;IBUPROFEN;NAPROXEN;PLACEBO (BLINDED) [Suspect]
     Indication: OSTEOARTHRITIS
     Dates: start: 20080319, end: 20080811
  3. CELECOXIB;IBUPROFEN;NAPROXEN;PLACEBO (BLINDED) [Suspect]
     Indication: RHEUMATOID ARTHRITIS
  4. CLONAZEPAM [Concomitant]
     Indication: BIPOLAR DISORDER
     Dates: start: 19980101
  5. ALTACE [Concomitant]
     Indication: HYPERTENSION
     Dates: start: 20030101
  6. BENICAR HCT [Concomitant]
     Indication: HYPERTENSION
     Dates: start: 20071101, end: 20081006
  7. LYRICA [Concomitant]
     Indication: RHEUMATOID ARTHRITIS
     Dates: start: 20071212
  8. LOVASTATIN [Concomitant]
     Indication: BLOOD CHOLESTEROL INCREASED
     Dates: start: 20020101
  9. SEROQUEL [Concomitant]
     Indication: BIPOLAR DISORDER
     Dates: start: 20071115
  10. MULTI-VITAMINS [Concomitant]
     Indication: VITAMIN SUPPLEMENTATION
     Dates: start: 19980101
  11. CALCIUM [Concomitant]
     Indication: MINERAL SUPPLEMENTATION
     Dates: start: 19980101, end: 20080924
  12. FISH OIL [Concomitant]
     Indication: MEDICAL DIET
     Dates: start: 19980101
  13. ASCORBIC ACID [Concomitant]
     Indication: VITAMIN SUPPLEMENTATION
     Dates: start: 19980101
  14. VITAMIN E [Concomitant]
     Indication: VITAMIN SUPPLEMENTATION
     Dates: start: 19980101
  15. ACETYLSALICYLIC ACID [Concomitant]
     Indication: CARDIOVASCULAR EVENT PROPHYLAXIS
     Dates: start: 20060101

REACTIONS (3)
  - DIZZINESS [None]
  - FALL [None]
  - WRIST FRACTURE [None]
